FAERS Safety Report 17866022 (Version 1)
Quarter: 2020Q2

REPORT INFORMATION
  Report Type: Spontaneous
  Country: CH (occurrence: CH)
  Receive Date: 20200605
  Receipt Date: 20200605
  Transmission Date: 20200714
  Serious: Yes (Disabling, Other)
  Sender: FDA-Public Use
  Company Number: CH-009507513-2005CHE009688

PATIENT
  Age: 62 Year

DRUGS (1)
  1. TIENAM [Suspect]
     Active Substance: CILASTATIN SODIUM\IMIPENEM
     Dosage: 250 MILLIGRAM, BID
     Route: 042
     Dates: start: 20200511, end: 20200512

REACTIONS (6)
  - Thrombophlebitis superficial [Recovered/Resolved]
  - Injection site pain [Recovering/Resolving]
  - Injection site extravasation [Recovered/Resolved]
  - Injection site oedema [Recovered/Resolved]
  - Blister [Recovered/Resolved]
  - Injection site necrosis [Recovering/Resolving]

NARRATIVE: CASE EVENT DATE: 20200512
